FAERS Safety Report 8997332 (Version 1)
Quarter: 2013Q1

REPORT INFORMATION
  Report Type: Spontaneous
  Country: US (occurrence: US)
  Receive Date: 20130104
  Receipt Date: 20130104
  Transmission Date: 20140127
  Serious: No
  Sender: FDA-Public Use
  Company Number: US-AMGEN-USASP2012078001

PATIENT
  Sex: 0

DRUGS (3)
  1. ENBREL [Suspect]
     Indication: PRODUCT USED FOR UNKNOWN INDICATION
     Dosage: 50 MG, QWK
  2. ENBREL [Suspect]
     Indication: SPONDYLOARTHROPATHY
  3. INH [Concomitant]
     Dosage: UNK

REACTIONS (2)
  - Liver disorder [Unknown]
  - Hepatic enzyme increased [Unknown]
